FAERS Safety Report 14901622 (Version 2)
Quarter: 2018Q2

REPORT INFORMATION
  Report Type: Spontaneous
  Country: JP (occurrence: JP)
  Receive Date: 20180516
  Receipt Date: 20180628
  Transmission Date: 20180711
  Serious: Yes (Death, Life-Threatening, Other)
  Sender: FDA-Public Use
  Company Number: JP-SA-2017SA055450

PATIENT
  Age: 73 Year
  Sex: Male

DRUGS (4)
  1. JEVTANA [Suspect]
     Active Substance: CABAZITAXEL
     Indication: HORMONE-REFRACTORY PROSTATE CANCER
     Dosage: 20 MG/M2, 1X
     Route: 042
     Dates: start: 20170125, end: 20170125
  2. JEVTANA [Suspect]
     Active Substance: CABAZITAXEL
     Dosage: 20 MG/M2, 1X
     Route: 042
     Dates: start: 20170321, end: 20170321
  3. PREDNISOLONE. [Suspect]
     Active Substance: PREDNISOLONE
     Indication: PRODUCT USED FOR UNKNOWN INDICATION
     Dosage: DAILY ADMINISTRATION
     Route: 065
  4. PEGFILGRASTIM [Concomitant]
     Active Substance: PEGFILGRASTIM
     Indication: PRODUCT USED FOR UNKNOWN INDICATION
     Route: 065

REACTIONS (8)
  - Haematemesis [Recovered/Resolved]
  - Pyrexia [Unknown]
  - Haemorrhage [Fatal]
  - White blood cell count decreased [Unknown]
  - Melaena [Unknown]
  - Upper gastrointestinal haemorrhage [Recovered/Resolved]
  - Febrile neutropenia [Recovered/Resolved]
  - Haemorrhage [Recovered/Resolved]

NARRATIVE: CASE EVENT DATE: 20170325
